FAERS Safety Report 18775439 (Version 1)
Quarter: 2021Q1

REPORT INFORMATION
  Report Type: Spontaneous
  Country: US (occurrence: US)
  Receive Date: 20210122
  Receipt Date: 20210122
  Transmission Date: 20210419
  Serious: No
  Sender: FDA-Public Use
  Company Number: US-TEVA-2021-US-1870819

PATIENT
  Age: 61 Year
  Sex: Female

DRUGS (5)
  1. MAGNESIUM SUPPLEMENT [Concomitant]
     Active Substance: MAGNESIUM
  2. SULFASALAZINE. [Suspect]
     Active Substance: SULFASALAZINE
     Route: 065
     Dates: end: 20210108
  3. CALCIUM SUPPLEMENT [Concomitant]
     Active Substance: CALCIUM
     Route: 065
  4. SULFASALAZINE. [Suspect]
     Active Substance: SULFASALAZINE
     Route: 065
     Dates: start: 20210109
  5. ARMOUR THYROID [Concomitant]
     Active Substance: THYROID, PORCINE
     Route: 065

REACTIONS (2)
  - Tremor [Not Recovered/Not Resolved]
  - Product substitution issue [Unknown]

NARRATIVE: CASE EVENT DATE: 202101
